FAERS Safety Report 10517956 (Version 3)
Quarter: 2015Q1

REPORT INFORMATION
  Report Type: Report from Study
  Country: US (occurrence: US)
  Receive Date: 20141015
  Receipt Date: 20150213
  Transmission Date: 20150720
  Serious: Yes (Hospitalization)
  Sender: FDA-Public Use
  Company Number: US-BIOGENIDEC-2014BI104671

PATIENT
  Age: 88 Year
  Sex: Female

DRUGS (1)
  1. AVONEX [Suspect]
     Active Substance: INTERFERON BETA-1A
     Indication: MULTIPLE SCLEROSIS
     Route: 030
     Dates: start: 20050121

REACTIONS (6)
  - Cardioversion [Recovered/Resolved]
  - Bile duct obstruction [Unknown]
  - Mobility decreased [Not Recovered/Not Resolved]
  - Bile duct stone [Recovered/Resolved]
  - Heart rate irregular [Unknown]
  - Memory impairment [Not Recovered/Not Resolved]

NARRATIVE: CASE EVENT DATE: 201410
